FAERS Safety Report 5531741-0 (Version None)
Quarter: 2007Q4

REPORT INFORMATION
  Report Type: 
  Country: None (occurrence: None)
  Receive Date: 20071128
  Receipt Date: 20071128
  Transmission Date: 20080405
  Serious: Yes (Hospitalization)
  Sender: FDA-Public Use
  Company Number: None

PATIENT
  Age: 69 Year
  Sex: Female
  Weight: 90.2658 kg

DRUGS (4)
  1. LOVENOX [Suspect]
     Indication: MYOCARDIAL INFARCTION
     Dosage: 90MG Q12H SUBQ
     Route: 058
     Dates: start: 20070822, end: 20070825
  2. LOVENOX [Suspect]
     Indication: THROMBOSIS
     Dosage: 90MG Q12H SUBQ
     Route: 058
     Dates: start: 20070822, end: 20070825
  3. ASPIRIN [Suspect]
     Indication: MYOCARDIAL INFARCTION
     Dosage: 81MG Q24H PO
     Route: 048
     Dates: end: 20070825
  4. ASPIRIN [Suspect]
     Indication: THROMBOSIS
     Dosage: 81MG Q24H PO
     Route: 048
     Dates: end: 20070825

REACTIONS (2)
  - ABDOMINAL WALL HAEMATOMA [None]
  - ANAEMIA [None]
